FAERS Safety Report 20559858 (Version 2)
Quarter: 2022Q2

REPORT INFORMATION
  Report Type: Report from Study
  Country: US (occurrence: US)
  Receive Date: 20220307
  Receipt Date: 20220404
  Transmission Date: 20220720
  Serious: Yes (Death, Other)
  Sender: FDA-Public Use
  Company Number: US-NOVARTISPH-NVSC2022US048729

PATIENT
  Age: 69 Year
  Sex: Female

DRUGS (1)
  1. PIQRAY [Suspect]
     Active Substance: ALPELISIB
     Indication: Breast cancer
     Dosage: 300 MG, QD
     Route: 048

REACTIONS (6)
  - Death [Fatal]
  - Neuropathy peripheral [Not Recovered/Not Resolved]
  - Skin fissures [Not Recovered/Not Resolved]
  - Skin exfoliation [Not Recovered/Not Resolved]
  - Peripheral swelling [Not Recovered/Not Resolved]
  - Product packaging difficult to open [Not Recovered/Not Resolved]

NARRATIVE: CASE EVENT DATE: 20220306
